FAERS Safety Report 24258240 (Version 1)
Quarter: 2024Q3

REPORT INFORMATION
  Report Type: Spontaneous
  Country: US (occurrence: None)
  Receive Date: 20240827
  Receipt Date: 20240827
  Transmission Date: 20241016
  Serious: Yes (Hospitalization)
  Sender: Public
  Company Number: None

PATIENT
  Sex: Female

DRUGS (6)
  1. LENALIDOMIDE [Suspect]
     Active Substance: LENALIDOMIDE
     Indication: Plasma cell myeloma
     Dosage: OTHER QUANTITY : TAKE 1 CAPSULE FOR 14 DAYS THEN 7 DAYS OFF;?FREQUENCY : DAILY;?
     Route: 048
     Dates: start: 20240719
  2. ASPIRIN [Concomitant]
     Active Substance: ASPIRIN
  3. DEXAMETHASONE [Concomitant]
     Active Substance: DEXAMETHASONE
  4. FERROUS SULFATE [Concomitant]
     Active Substance: FERROUS SULFATE
  5. KP VITAMIN D [Concomitant]
  6. VELCADE [Concomitant]
     Active Substance: BORTEZOMIB

REACTIONS (3)
  - Pain [None]
  - Swelling [None]
  - Therapy interrupted [None]
